FAERS Safety Report 8814800 (Version 2)
Quarter: 2014Q2

REPORT INFORMATION
  Report Type: Spontaneous
  Country: JP (occurrence: JP)
  Receive Date: 20120928
  Receipt Date: 20140519
  Transmission Date: 20141212
  Serious: Yes (Hospitalization, Other)
  Sender: FDA-Public Use
  Company Number: JP-MERCK-1203USA01961

PATIENT
  Age: 77 Year
  Sex: Male
  Weight: 71 kg

DRUGS (4)
  1. PREMINENT TABLETS [Suspect]
     Indication: HYPERTENSION
     Dosage: 1 DF, QD
     Route: 048
     Dates: start: 20081113, end: 20081225
  2. TENORMIN [Concomitant]
     Dosage: 25 MG/1DAY, DIVIDED DOSE FREQUENCY UNKNOWN
     Route: 048
  3. SIGMART [Concomitant]
     Dosage: 15 MG/1DAY, DIVIDED DOSE FREQUENCY UNKNOWN
     Route: 065
  4. BAYASPIRIN [Concomitant]
     Dosage: 100 MG/1DAY, DIVIDED DOSE FREQUENCY UNKNOWN, FORMULATION: ENT
     Route: 048

REACTIONS (1)
  - Cerebral infarction [Recovered/Resolved with Sequelae]
